FAERS Safety Report 4299986-8 (Version None)
Quarter: 2004Q1

REPORT INFORMATION
  Report Type: 
  Country: None (occurrence: None)
  Receive Date: 20040218
  Receipt Date: 20040205
  Transmission Date: 20041129
  Serious: Yes (Hospitalization)
  Sender: FDA-Public Use
  Company Number: JP-JNJFOC-20040201526

PATIENT
  Age: 72 Year
  Sex: Male
  Weight: 53 kg

DRUGS (5)
  1. REMICADE [Suspect]
     Indication: RHEUMATOID ARTHRITIS
     Dosage: 166 MG, 1 IN 1 AS NECESSARY, INTRAVENOUS DRIP; SEE IMAE
     Route: 041
     Dates: start: 20031206, end: 20031206
  2. REMICADE [Suspect]
     Indication: RHEUMATOID ARTHRITIS
     Dosage: 166 MG, 1 IN 1 AS NECESSARY, INTRAVENOUS DRIP; SEE IMAE
     Route: 041
     Dates: start: 20031219, end: 20031219
  3. REMICADE [Suspect]
     Indication: RHEUMATOID ARTHRITIS
     Dosage: 166 MG, 1 IN 1 AS NECESSARY, INTRAVENOUS DRIP; SEE IMAE
     Route: 041
     Dates: start: 20040116, end: 20040116
  4. PREDNISOLONE [Concomitant]
  5. RHEUMATREX [Concomitant]

REACTIONS (3)
  - ANOREXIA [None]
  - PULMONARY TUBERCULOSIS [None]
  - PYREXIA [None]
